FAERS Safety Report 21112127 (Version 1)
Quarter: 2022Q3

REPORT INFORMATION
  Report Type: Spontaneous
  Country: CN (occurrence: CN)
  Receive Date: 20220721
  Receipt Date: 20220721
  Transmission Date: 20221027
  Serious: Yes (Other)
  Sender: FDA-Public Use
  Company Number: CN-AMGEN-CHNSP2022119733

PATIENT
  Age: 63 Year
  Sex: Male

DRUGS (12)
  1. FILGRASTIM [Suspect]
     Active Substance: FILGRASTIM
     Indication: Myelosuppression
     Dosage: UNK
     Route: 065
  2. LENALIDOMIDE [Concomitant]
     Active Substance: LENALIDOMIDE
     Dosage: 25 MILLIGRAM DAY 1-21
     Route: 065
     Dates: start: 20190809
  3. LENALIDOMIDE [Concomitant]
     Active Substance: LENALIDOMIDE
     Dosage: 25 MILLIGRAM DAY 1-21
     Route: 065
     Dates: start: 20190910
  4. BORTEZOMIB [Concomitant]
     Active Substance: BORTEZOMIB
     Dosage: 2.3 MILLIGRAM DAY 1, 4, 8, 11 (DAY 21 DAY CYCLE)
  5. CYCLOPHOSPHAMIDE [Concomitant]
     Active Substance: CYCLOPHOSPHAMIDE
     Dosage: 1.3 GRAM DAY 02 (DAY 21 DAY CYCLE)
  6. EPIRUBICIN [Concomitant]
     Active Substance: EPIRUBICIN
     Dosage: 40 MILLIGRAM DAY 02 (DAY 21 DAY CYCLE)
  7. VINDESINE [Concomitant]
     Active Substance: VINDESINE
     Dosage: 4 MILLIGRAM DAY 21 (DAY 21 DAY CYCLE)
  8. PREDNISOLONE [Concomitant]
     Active Substance: PREDNISOLONE
     Dosage: 65 MILLIGRAM DAY 02-06 (DAY 21 DAY CYCLE)
  9. BICNU [Concomitant]
     Active Substance: CARMUSTINE
  10. ETOPOSIDE [Concomitant]
     Active Substance: ETOPOSIDE
  11. CYTARABINE [Concomitant]
     Active Substance: CYTARABINE
  12. MELPHALAN [Concomitant]
     Active Substance: MELPHALAN

REACTIONS (2)
  - Inflammation [Unknown]
  - Herpes zoster [Unknown]

NARRATIVE: CASE EVENT DATE: 20200506
